FAERS Safety Report 25222583 (Version 4)
Quarter: 2025Q3

REPORT INFORMATION
  Report Type: Report from Study
  Country: CA (occurrence: CA)
  Receive Date: 20250421
  Receipt Date: 20250811
  Transmission Date: 20251020
  Serious: Yes (Other)
  Sender: JOHNSON AND JOHNSON
  Company Number: CA-JNJFOC-20230464813

PATIENT
  Age: 66 Year
  Sex: Male

DRUGS (5)
  1. REMICADE [Suspect]
     Active Substance: INFLIXIMAB
     Indication: Crohn^s disease
     Route: 041
     Dates: start: 20150313
  2. REMICADE [Suspect]
     Active Substance: INFLIXIMAB
     Indication: Hidradenitis
     Dosage: EXPIRY: APR-2027
     Route: 041
     Dates: start: 20181126
  3. REMICADE [Suspect]
     Active Substance: INFLIXIMAB
     Dosage: EXPIRY DATE: 28-FEB-2026
     Route: 041
  4. REMICADE [Suspect]
     Active Substance: INFLIXIMAB
     Route: 041
     Dates: start: 20181126
  5. REMICADE [Suspect]
     Active Substance: INFLIXIMAB
     Route: 041
     Dates: start: 20150313

REACTIONS (17)
  - Intestinal resection [Recovering/Resolving]
  - Stoma closure [Recovering/Resolving]
  - Post procedural infection [Recovering/Resolving]
  - Blood pressure increased [Unknown]
  - Nephrolithiasis [Not Recovered/Not Resolved]
  - Acquired cystic kidney disease [Not Recovered/Not Resolved]
  - Surgery [Unknown]
  - Fall [Unknown]
  - Upper limb fracture [Recovering/Resolving]
  - Hernia [Recovering/Resolving]
  - Stoma creation [Recovering/Resolving]
  - Sinusitis [Unknown]
  - Stoma site haemorrhage [Not Recovered/Not Resolved]
  - Eye infection [Unknown]
  - Dacryolith [Unknown]
  - Off label use [Unknown]
  - Inflammation [Not Recovered/Not Resolved]

NARRATIVE: CASE EVENT DATE: 20241201
